FAERS Safety Report 4617756-5 (Version None)
Quarter: 2005Q1

REPORT INFORMATION
  Report Type: 
  Country: None (occurrence: None)
  Receive Date: 20050324
  Receipt Date: 20050316
  Transmission Date: 20050727
  Serious: Yes (Hospitalization)
  Sender: FDA-Public Use
  Company Number: PHBS2005US03938

PATIENT
  Age: 38 Year
  Sex: Female

DRUGS (1)
  1. BACLOFEN [Suspect]
     Indication: MUSCLE SPASTICITY
     Route: 037

REACTIONS (4)
  - CEREBRAL ARTERY EMBOLISM [None]
  - HEADACHE [None]
  - HYPERACUSIS [None]
  - PHOTOPHOBIA [None]
